FAERS Safety Report 5838852-0 (Version None)
Quarter: 2008Q3

REPORT INFORMATION
  Report Type: 
  Country: None (occurrence: None)
  Receive Date: 20080808
  Receipt Date: 20080731
  Transmission Date: 20090109
  Serious: Yes (Other)
  Sender: FDA-Public Use
  Company Number: JP-ABBOTT-08P-087-0468669-N\

PATIENT
  Age: 73 Year
  Sex: Female

DRUGS (4)
  1. CLARITHROMYCIN [Suspect]
     Indication: HELICOBACTER GASTRITIS
     Route: 048
     Dates: start: 20080710, end: 20080710
  2. LANSOPRAZOLE CAPSULES [Suspect]
     Indication: HELICOBACTER GASTRITIS
     Route: 048
     Dates: start: 20080710, end: 20080710
  3. AMOXICILLIN TRIHYDRATE [Suspect]
     Indication: HELICOBACTER GASTRITIS
     Route: 048
     Dates: start: 20080710, end: 20080710
  4. CLOTIAZEPAM [Concomitant]
     Indication: DRUG USE FOR UNKNOWN INDICATION
     Route: 048

REACTIONS (4)
  - GENERALISED ERYTHEMA [None]
  - HYPERTENSION [None]
  - NAUSEA [None]
  - RASH [None]
